FAERS Safety Report 15893252 (Version 1)
Quarter: 2019Q1

REPORT INFORMATION
  Report Type: Report from Study
  Country: US (occurrence: US)
  Receive Date: 20190130
  Receipt Date: 20190130
  Transmission Date: 20190417
  Serious: No
  Sender: FDA-Public Use
  Company Number: US-EXELIXIS-CABO-18015450

PATIENT
  Sex: Male

DRUGS (10)
  1. IMIPRAMINE [Concomitant]
     Active Substance: IMIPRAMINE
  2. IRON [Concomitant]
     Active Substance: IRON
  3. A-HYDROCORT [Concomitant]
     Active Substance: HYDROCORTISONE SODIUM SUCCINATE
  4. MEGESTROL ACETATE. [Concomitant]
     Active Substance: MEGESTROL ACETATE
  5. ALFUZOSIN [Concomitant]
     Active Substance: ALFUZOSIN
  6. CYANOCOBALAMIN. [Concomitant]
     Active Substance: CYANOCOBALAMIN
  7. CABOMETYX [Suspect]
     Active Substance: CABOZANTINIB S-MALATE
     Indication: RENAL CANCER
     Dosage: 60 MG, QD
     Route: 048
     Dates: start: 20180727
  8. CETIRIZINE [Concomitant]
     Active Substance: CETIRIZINE HYDROCHLORIDE
  9. METFORMIN [Concomitant]
     Active Substance: METFORMIN HYDROCHLORIDE
  10. VITAMIN B12 [Concomitant]
     Active Substance: CYANOCOBALAMIN

REACTIONS (4)
  - Fatigue [Unknown]
  - Stomatitis [Unknown]
  - Nausea [Unknown]
  - Insomnia [Unknown]

NARRATIVE: CASE EVENT DATE: 2018
